FAERS Safety Report 18135523 (Version 1)
Quarter: 2020Q3

REPORT INFORMATION
  Report Type: Spontaneous
  Country: US (occurrence: US)
  Receive Date: 20200811
  Receipt Date: 20200811
  Transmission Date: 20201103
  Serious: Yes (Death)
  Sender: FDA-Public Use
  Company Number: None

PATIENT
  Age: 59 Year
  Sex: Female
  Weight: 62.2 kg

DRUGS (20)
  1. CHLORHEXIDINE [Concomitant]
     Active Substance: CHLORHEXIDINE
     Dates: start: 20200726, end: 20200807
  2. VANCOMYCIN [Concomitant]
     Active Substance: VANCOMYCIN
     Dates: start: 20200719, end: 20200722
  3. POLYETHLENE GLYCOL [Concomitant]
     Dates: start: 20200720, end: 20200807
  4. MEROPENEM. [Concomitant]
     Active Substance: MEROPENEM
     Dates: start: 20200719, end: 20200722
  5. HYOSCYAMINE. [Concomitant]
     Active Substance: HYOSCYAMINE
     Dates: start: 20200720, end: 20200807
  6. REMDESIVIR. [Suspect]
     Active Substance: REMDESIVIR
     Indication: COVID-19
     Dates: start: 20200722, end: 20200723
  7. DEXAMETHASONE. [Concomitant]
     Active Substance: DEXAMETHASONE
     Dates: start: 20200719, end: 20200729
  8. SCOPOLAMINE PATCH [Concomitant]
     Active Substance: SCOPOLAMINE
     Dates: start: 20200720, end: 20200807
  9. HYDROMORPHONE [Concomitant]
     Active Substance: HYDROMORPHONE
     Dates: start: 20200726, end: 20200807
  10. SUCRALFATE. [Concomitant]
     Active Substance: SUCRALFATE
     Dates: start: 20200720, end: 20200807
  11. ASCORBIC ACID. [Concomitant]
     Active Substance: ASCORBIC ACID
     Dates: start: 20200720, end: 20200807
  12. DIGOXIN. [Concomitant]
     Active Substance: DIGOXIN
     Dates: start: 20200720, end: 20200801
  13. FUROSEMIDE. [Concomitant]
     Active Substance: FUROSEMIDE
     Dates: start: 20200720, end: 20200726
  14. METOPROLOL TARTRATE. [Concomitant]
     Active Substance: METOPROLOL TARTRATE
     Dates: start: 20200720, end: 20200807
  15. MORPHINE [Concomitant]
     Active Substance: MORPHINE
     Dates: start: 20200725, end: 20200727
  16. AMLODIPINE [Concomitant]
     Active Substance: AMLODIPINE BESYLATE
     Dates: start: 20200720, end: 20200807
  17. CALCIUM CARBONATE. [Concomitant]
     Active Substance: CALCIUM CARBONATE
     Dates: start: 20200720, end: 20200807
  18. LACTOBACILLUS [Concomitant]
     Active Substance: LACTOBACILLUS ACIDOPHILUS
     Dates: start: 20200720, end: 20200807
  19. MELATONIN [Concomitant]
     Active Substance: MELATONIN
     Dates: start: 20200720, end: 20200807
  20. TIZANIDINE. [Concomitant]
     Active Substance: TIZANIDINE
     Dates: start: 20200720, end: 20200807

REACTIONS (2)
  - Disease progression [None]
  - Cardiac arrest [None]

NARRATIVE: CASE EVENT DATE: 20200807
